FAERS Safety Report 23559298 (Version 1)
Quarter: 2024Q1

REPORT INFORMATION
  Report Type: Spontaneous
  Country: US (occurrence: US)
  Receive Date: 20240223
  Receipt Date: 20240223
  Transmission Date: 20240410
  Serious: No
  Sender: FDA-Public Use
  Company Number: US-BRISTOL-MYERS SQUIBB COMPANY-2024-029653

PATIENT
  Age: 73 Year
  Sex: Female
  Weight: 71.67 kg

DRUGS (1)
  1. REVLIMID [Suspect]
     Active Substance: LENALIDOMIDE
     Indication: Plasma cell myeloma
     Dosage: 2WEEKS ON, 1 WEEK OFF
     Route: 048

REACTIONS (3)
  - Stomatitis [Not Recovered/Not Resolved]
  - Glossitis [Not Recovered/Not Resolved]
  - Off label use [Unknown]
